FAERS Safety Report 9900201 (Version 1)
Quarter: 2014Q1

REPORT INFORMATION
  Report Type: Report from Study
  Country: US (occurrence: US)
  Receive Date: 20140214
  Receipt Date: 20140214
  Transmission Date: 20141002
  Serious: Yes (Other)
  Sender: FDA-Public Use
  Company Number: US-ROCHE-1346355

PATIENT
  Sex: 0

DRUGS (1)
  1. BEVACIZUMAB [Suspect]
     Indication: GLIOMA
     Route: 065

REACTIONS (4)
  - Transaminases increased [Unknown]
  - Hypophosphataemia [Unknown]
  - Hypertension [Unknown]
  - Abdominal pain [Unknown]
